FAERS Safety Report 8448330-0 (Version None)
Quarter: 2012Q2

REPORT INFORMATION
  Report Type: 
  Country: None (occurrence: None)
  Receive Date: 20120619
  Receipt Date: 20120612
  Transmission Date: 20120825
  Serious: No
  Sender: FDA-Public Use
  Company Number: US-PFIZER INC-2012078367

PATIENT
  Sex: Female

DRUGS (1)
  1. XALATAN [Suspect]
     Dosage: 1 GTT, EVERY BED TIME
     Route: 047
     Dates: start: 20110425

REACTIONS (2)
  - TARSAL TUNNEL SYNDROME [None]
  - FALL [None]
